FAERS Safety Report 9531624 (Version 1)
Quarter: 2013Q3

REPORT INFORMATION
  Report Type: Spontaneous
  Country: US (occurrence: None)
  Receive Date: 20130917
  Receipt Date: 20130917
  Transmission Date: 20140515
  Serious: No
  Sender: FDA-Public Use
  Company Number: None

PATIENT
  Sex: Female

DRUGS (1)
  1. ENBREL [Suspect]
     Dosage: 09/06/2013 TO 2 WEEKS AGO DURATION, 50 MG ONCE WEEKLY SUB Q
     Route: 058
     Dates: start: 20130906

REACTIONS (2)
  - Dizziness [None]
  - Nausea [None]
